FAERS Safety Report 5187342-X (Version None)
Quarter: 2006Q4

REPORT INFORMATION
  Report Type: 
  Country: None (occurrence: None)
  Receive Date: 20061214
  Receipt Date: 20061129
  Transmission Date: 20070319
  Serious: Yes (Hospitalization)
  Sender: FDA-Public Use
  Company Number: DSA_81731_2006

PATIENT
  Age: 27 Year
  Sex: Male

DRUGS (4)
  1. SODIUM OXYBATE(OXYBATE SODIUM) (SOLUTION) (SODIUM OXYBATE) [Suspect]
     Indication: NARCOLEPSY
     Dosage: SEE IMAGE
     Route: 048
     Dates: start: 20060101, end: 20060101
  2. SODIUM OXYBATE(OXYBATE SODIUM) (SOLUTION) (SODIUM OXYBATE) [Suspect]
     Indication: NARCOLEPSY
     Dosage: SEE IMAGE
     Route: 048
     Dates: start: 20060301
  3. CONCERTA [Concomitant]
  4. METHYLPHENIDATE HCL [Concomitant]

REACTIONS (6)
  - BLOOD ELECTROLYTES DECREASED [None]
  - DEHYDRATION [None]
  - DIARRHOEA [None]
  - NAUSEA [None]
  - PYREXIA [None]
  - VERTIGO [None]
